FAERS Safety Report 17564422 (Version 1)
Quarter: 2020Q1

REPORT INFORMATION
  Report Type: Spontaneous
  Country: US (occurrence: US)
  Receive Date: 20200313
  Receipt Date: 20200313
  Transmission Date: 20200409
  Serious: Yes (Hospitalization, Other)
  Sender: FDA-Public Use
  Company Number: None

PATIENT
  Age: 70 Year
  Sex: Male

DRUGS (10)
  1. VIAGRA [Concomitant]
     Active Substance: SILDENAFIL CITRATE
  2. TOITERODINE [Concomitant]
  3. DALFAMPRIDINE  10MG [Suspect]
     Active Substance: DALFAMPRIDINE
     Indication: MULTIPLE SCLEROSIS
     Route: 048
     Dates: start: 20130702
  4. PROCHLOPER [Concomitant]
  5. PAROXETINE. [Concomitant]
     Active Substance: PAROXETINE
  6. DETROL [Concomitant]
     Active Substance: TOLTERODINE TARTRATE
  7. LEVOTHYROXINE. [Concomitant]
     Active Substance: LEVOTHYROXINE
  8. LOSARTAN. [Concomitant]
     Active Substance: LOSARTAN
  9. ATORVASTATIN [Concomitant]
     Active Substance: ATORVASTATIN
  10. PREVIDENT [Concomitant]
     Active Substance: SODIUM FLUORIDE

REACTIONS (2)
  - Tongue neoplasm malignant stage unspecified [None]
  - Neoplasm malignant [None]

NARRATIVE: CASE EVENT DATE: 20200131
